FAERS Safety Report 6252026-3 (Version None)
Quarter: 2009Q2

REPORT INFORMATION
  Report Type: 
  Country: None (occurrence: None)
  Receive Date: 20090630
  Receipt Date: 20040801
  Transmission Date: 20091009
  Serious: Yes (Hospitalization)
  Sender: FDA-Public Use
  Company Number: US-ROCHE-638654

PATIENT
  Sex: Male

DRUGS (5)
  1. ENFUVIRTIDE [Suspect]
     Route: 065
     Dates: start: 20040715, end: 20041011
  2. ENFUVIRTIDE [Suspect]
     Route: 065
     Dates: start: 20041214, end: 20051219
  3. KALETRA [Concomitant]
     Dates: start: 20040715, end: 20041011
  4. LEXIVA [Concomitant]
     Dates: start: 20040715, end: 20041011
  5. VIDEX EC [Concomitant]
     Dates: start: 20040715, end: 20041011

REACTIONS (5)
  - CHRONIC OBSTRUCTIVE PULMONARY DISEASE [None]
  - DIABETES MELLITUS [None]
  - HIV INFECTION [None]
  - HYPERLIPIDAEMIA [None]
  - HYPERTENSION [None]
